FAERS Safety Report 9037873 (Version 1)
Quarter: 2013Q1

REPORT INFORMATION
  Report Type: Spontaneous
  Country: US (occurrence: US)
  Receive Date: 20130129
  Receipt Date: 20130129
  Transmission Date: 20140127
  Serious: No
  Sender: FDA-Public Use
  Company Number: US-009507513-1301USA012531

PATIENT
  Age: 37 Year
  Sex: Female

DRUGS (1)
  1. FOLLISTIM AQ [Suspect]
     Indication: ASSISTED FERTILISATION
     Dosage: 75 IU, QD
     Route: 058
     Dates: start: 20121105, end: 20121219

REACTIONS (6)
  - Lip swelling [Not Recovered/Not Resolved]
  - Lip blister [Not Recovered/Not Resolved]
  - Chapped lips [Not Recovered/Not Resolved]
  - Scab [Not Recovered/Not Resolved]
  - Lip dry [Not Recovered/Not Resolved]
  - Cheilitis [Not Recovered/Not Resolved]
